FAERS Safety Report 5093863-0 (Version None)
Quarter: 2006Q3

REPORT INFORMATION
  Report Type: 
  Country: None (occurrence: None)
  Receive Date: 20060831
  Receipt Date: 20060801
  Transmission Date: 20061208
  Serious: Yes (Other)
  Sender: FDA-Public Use
  Company Number: US-BRISTOL-MYERS SQUIBB COMPANY-13461587

PATIENT
  Age: 15 Year
  Sex: Female
  Weight: 57 kg

DRUGS (4)
  1. ABILIFY [Suspect]
     Indication: SCHIZOPHRENIA
     Route: 048
     Dates: start: 20060511
  2. ABILIFY [Suspect]
     Indication: PSYCHOTIC DISORDER
     Route: 048
     Dates: start: 20060511
  3. CONTRACEPTIVE [Concomitant]
     Indication: CONTRACEPTION
     Route: 048
  4. SEROQUEL [Concomitant]
     Dates: start: 20060401, end: 20060511

REACTIONS (2)
  - ABORTION INDUCED [None]
  - PREGNANCY [None]
